FAERS Safety Report 17845934 (Version 1)
Quarter: 2020Q2

REPORT INFORMATION
  Report Type: Spontaneous
  Country: US (occurrence: US)
  Receive Date: 20200601
  Receipt Date: 20200601
  Transmission Date: 20200714
  Serious: Yes (Hospitalization, Other)
  Sender: FDA-Public Use
  Company Number: US-LUPIN PHARMACEUTICALS INC.-2020-02548

PATIENT
  Age: 31 Year
  Sex: Female

DRUGS (1)
  1. NORETHISTERONE AND ETHINYL ESTRADIOL TABLETS [Suspect]
     Active Substance: ETHINYL ESTRADIOL\NORETHINDRONE
     Indication: ORAL CONTRACEPTION
     Dosage: 1 DOSAGE FORM, QD (20 MCG/1MG)
     Route: 048

REACTIONS (4)
  - Hepatomegaly [Recovered/Resolved]
  - Portal fibrosis [Recovered/Resolved]
  - Venoocclusive liver disease [Recovered/Resolved]
  - Hepatic fibrosis [Recovered/Resolved]
